FAERS Safety Report 16648775 (Version 3)
Quarter: 2020Q2

REPORT INFORMATION
  Report Type: Spontaneous
  Country: US (occurrence: US)
  Receive Date: 20190730
  Receipt Date: 20200515
  Transmission Date: 20200713
  Serious: Yes (Other)
  Sender: FDA-Public Use
  Company Number: US-TAKEDA-2019TUS045066

PATIENT

DRUGS (38)
  1. NEXIUM [Suspect]
     Active Substance: ESOMEPRAZOLE MAGNESIUM
     Indication: GASTROOESOPHAGEAL REFLUX DISEASE
     Dosage: 40 MILLIGRAM, QD
     Route: 048
     Dates: start: 20080314, end: 20140717
  2. NEXIUM [Suspect]
     Active Substance: ESOMEPRAZOLE MAGNESIUM
     Indication: ULCER
     Dosage: UNK
     Route: 048
     Dates: start: 2005, end: 2016
  3. HYDRALAZINE [Concomitant]
     Active Substance: HYDRALAZINE HYDROCHLORIDE
     Indication: BLOOD PRESSURE ABNORMAL
     Dosage: UNK
     Dates: start: 201302, end: 201309
  4. HYDRALAZINE [Concomitant]
     Active Substance: HYDRALAZINE HYDROCHLORIDE
     Dosage: UNK
     Dates: start: 201703, end: 201712
  5. AMOXICILLIN. [Concomitant]
     Active Substance: AMOXICILLIN
     Indication: INFECTION
     Dosage: UNK
     Dates: start: 201407
  6. PROTONIX [Suspect]
     Active Substance: PANTOPRAZOLE SODIUM
     Dosage: 40 MILLIGRAM, QD
     Route: 048
  7. PRILOSEC [Suspect]
     Active Substance: OMEPRAZOLE MAGNESIUM
     Indication: GASTROOESOPHAGEAL REFLUX DISEASE
     Dosage: 40 MILLIGRAM, QD
     Route: 048
     Dates: start: 2005, end: 2014
  8. CARVEDILOL. [Concomitant]
     Active Substance: CARVEDILOL
     Indication: HYPERTENSION
     Dosage: UNK
     Dates: start: 20130727, end: 20160105
  9. NAPROXEN. [Concomitant]
     Active Substance: NAPROXEN
     Indication: PAIN
     Dosage: UNK
     Dates: start: 20150819, end: 20150919
  10. IBUPROFEN. [Concomitant]
     Active Substance: IBUPROFEN
     Indication: ARTHRITIS
     Dosage: UNK
     Dates: start: 1996
  11. PEPTO-BISMOL [Concomitant]
     Active Substance: BISMUTH SUBSALICYLATE
     Dosage: UNK
     Dates: start: 1996
  12. AZITHROMYCIN ANHYDROUS. [Concomitant]
     Active Substance: AZITHROMYCIN ANHYDROUS
     Indication: INFECTION
     Dosage: UNK
     Dates: start: 201609
  13. LEVOFLOXACIN. [Concomitant]
     Active Substance: LEVOFLOXACIN
     Indication: INFECTION
     Dosage: UNK
     Dates: start: 201603
  14. PANTOPRAZOLE [Suspect]
     Active Substance: PANTOPRAZOLE
     Indication: ULCER
     Dosage: 40 MILLIGRAM, QD
     Route: 048
     Dates: start: 20131023, end: 20160623
  15. LISINOPRIL. [Concomitant]
     Active Substance: LISINOPRIL
     Indication: HYPERTENSION
     Dosage: UNK
     Dates: start: 20090624, end: 20170321
  16. CLONIDINE. [Concomitant]
     Active Substance: CLONIDINE
     Indication: HYPERTENSION
     Dosage: UNK
     Dates: start: 20140312, end: 20160311
  17. CRESTOR [Concomitant]
     Active Substance: ROSUVASTATIN CALCIUM
     Dosage: UNK
     Dates: start: 201207, end: 201309
  18. PREVACID [Suspect]
     Active Substance: LANSOPRAZOLE
     Indication: ULCER
     Dosage: 30 MILLIGRAM, QD
     Route: 048
     Dates: start: 19950610, end: 20180829
  19. PANTOPRAZOLE [Suspect]
     Active Substance: PANTOPRAZOLE
     Dosage: 40 MILLIGRAM, BID
     Route: 048
     Dates: start: 2013, end: 2016
  20. NEXIUM 24HR [Suspect]
     Active Substance: ESOMEPRAZOLE MAGNESIUM
     Indication: ULCER
     Dosage: 20 MILLIGRAM, QD
     Route: 048
     Dates: start: 20140428, end: 20180829
  21. FUROSEMIDE. [Concomitant]
     Active Substance: FUROSEMIDE
     Indication: SWELLING
     Dosage: UNK
     Dates: start: 201302, end: 201312
  22. CRESTOR [Concomitant]
     Active Substance: ROSUVASTATIN CALCIUM
     Indication: BLOOD CHOLESTEROL INCREASED
     Dosage: UNK
     Dates: start: 20120726, end: 20130522
  23. CEPHALEXINE [Concomitant]
     Active Substance: CEPHALEXIN
     Indication: INFECTION
     Dosage: UNK
     Dates: start: 201206
  24. PROTONIX [Suspect]
     Active Substance: PANTOPRAZOLE SODIUM
     Indication: GASTROOESOPHAGEAL REFLUX DISEASE
     Dosage: UNK
     Route: 048
     Dates: start: 2005, end: 2016
  25. NEXIUM 24HR [Suspect]
     Active Substance: ESOMEPRAZOLE MAGNESIUM
     Indication: GASTROOESOPHAGEAL REFLUX DISEASE
  26. LISINOPRIL. [Concomitant]
     Active Substance: LISINOPRIL
     Dosage: UNK
     Dates: start: 201703, end: 201704
  27. FUROSEMIDE. [Concomitant]
     Active Substance: FUROSEMIDE
     Indication: FLUID RETENTION
     Dosage: UNK
     Dates: start: 20130207, end: 20131011
  28. SIMVASTATIN. [Concomitant]
     Active Substance: SIMVASTATIN
     Indication: BLOOD CHOLESTEROL INCREASED
     Dosage: UNK
     Dates: start: 201210
  29. TRAMADOL. [Concomitant]
     Active Substance: TRAMADOL
     Indication: PAIN
     Dosage: UNK
     Dates: start: 201508
  30. VANCOMYCIN [Concomitant]
     Active Substance: VANCOMYCIN
     Indication: INFECTION
     Dosage: UNK
     Dates: start: 201603
  31. SERTRALINE [Concomitant]
     Active Substance: SERTRALINE HYDROCHLORIDE
     Indication: DEPRESSION
     Dosage: UNK
     Dates: start: 20161102, end: 20180202
  32. LISINOPRIL. [Concomitant]
     Active Substance: LISINOPRIL
     Indication: BLOOD PRESSURE ABNORMAL
     Dosage: UNK
     Dates: start: 200806, end: 200807
  33. LOSARTAN. [Concomitant]
     Active Substance: LOSARTAN
     Indication: BLOOD PRESSURE ABNORMAL
     Dosage: UNK
     Dates: start: 201202, end: 201212
  34. PREVACID [Suspect]
     Active Substance: LANSOPRAZOLE
     Indication: GASTROOESOPHAGEAL REFLUX DISEASE
     Dosage: 30 MILLIGRAM, QD
     Route: 048
     Dates: start: 2005, end: 2014
  35. NEXIUM [Suspect]
     Active Substance: ESOMEPRAZOLE MAGNESIUM
     Dosage: 40 MILLIGRAM, QD
     Route: 048
     Dates: start: 2012, end: 2014
  36. PRILOSEC [Suspect]
     Active Substance: OMEPRAZOLE MAGNESIUM
     Indication: ULCER
     Dosage: 40 MILLIGRAM, QD
     Route: 048
     Dates: start: 19891014, end: 20180829
  37. PEPCID COMPLETE                    /01596501/ [Concomitant]
     Dosage: UNK
     Dates: start: 1988, end: 2008
  38. AMOXICILLIN. [Concomitant]
     Active Substance: AMOXICILLIN
     Dosage: UNK
     Dates: start: 201711

REACTIONS (5)
  - Chronic kidney disease [Not Recovered/Not Resolved]
  - Renal failure [Unknown]
  - Rebound acid hypersecretion [Unknown]
  - End stage renal disease [Not Recovered/Not Resolved]
  - Acute kidney injury [Unknown]

NARRATIVE: CASE EVENT DATE: 20150108
